FAERS Safety Report 7542212-4 (Version None)
Quarter: 2011Q2

REPORT INFORMATION
  Report Type: 
  Country: None (occurrence: None)
  Receive Date: 20110606
  Receipt Date: 20110527
  Transmission Date: 20111010
  Serious: Yes (Other)
  Sender: FDA-Public Use
  Company Number: 900756

PATIENT
  Sex: Female

DRUGS (2)
  1. PHENYTOIN [Suspect]
     Indication: PRODUCT USED FOR UNKNOWN INDICATION
  2. CAPECITABINE [Suspect]
     Indication: PRODUCT USED FOR UNKNOWN INDICATION

REACTIONS (3)
  - DRUG INTERACTION [None]
  - ANTICONVULSANT DRUG LEVEL INCREASED [None]
  - LETHARGY [None]
